FAERS Safety Report 20552335 (Version 1)
Quarter: 2022Q1

REPORT INFORMATION
  Report Type: Spontaneous
  Country: US (occurrence: None)
  Receive Date: 20220303
  Receipt Date: 20220303
  Transmission Date: 20220423
  Serious: No
  Sender: FDA-Public Use
  Company Number: None

PATIENT
  Age: 14 Year
  Sex: Male

DRUGS (1)
  1. PROCRIT [Suspect]
     Active Substance: ERYTHROPOIETIN
     Dosage: 5000 (0.5ML) OTHER SUBCUTANEOUS?
     Route: 058
     Dates: start: 201911

REACTIONS (5)
  - Accidental exposure to product [None]
  - Exposure via eye contact [None]
  - Eye irritation [None]
  - Skin tightness [None]
  - Periorbital disorder [None]

NARRATIVE: CASE EVENT DATE: 20220303
